FAERS Safety Report 5559785-3 (Version None)
Quarter: 2007Q4

REPORT INFORMATION
  Report Type: 
  Country: None (occurrence: None)
  Receive Date: 20071214
  Receipt Date: 20071015
  Transmission Date: 20080405
  Serious: No
  Sender: FDA-Public Use
  Company Number: US-ABBOTT-07P-163-0420940-00

PATIENT
  Sex: Female
  Weight: 100 kg

DRUGS (12)
  1. HUMIRA [Suspect]
     Indication: RHEUMATOID ARTHRITIS
     Route: 058
     Dates: start: 20070928
  2. MULTI-VITAMIN [Concomitant]
     Indication: VITAMIN SUPPLEMENTATION
     Dates: start: 20071011, end: 20071011
  3. GINGKO BILOBA [Concomitant]
     Indication: PHYTOTHERAPY
     Dates: start: 20071011, end: 20071011
  4. OMEPRAZOLE [Concomitant]
     Indication: DRUG USE FOR UNKNOWN INDICATION
  5. MONTELUKAST SODIUM [Concomitant]
     Indication: ASTHMA
     Dates: start: 20070101
  6. LORATADINE [Concomitant]
     Indication: ASTHMA
     Dates: start: 20070101
  7. LORATADINE [Concomitant]
     Indication: HYPERSENSITIVITY
  8. LEFLUNOMIDE [Concomitant]
     Indication: RHEUMATOID ARTHRITIS
     Dates: start: 20000101
  9. NABUMETONE [Concomitant]
     Indication: RHEUMATOID ARTHRITIS
  10. ARANEST [Concomitant]
     Indication: RED BLOOD CELL ABNORMALITY
     Route: 050
     Dates: start: 20070822
  11. TRIAMETERENE/HCTZ [Concomitant]
     Indication: HYPERTENSION
  12. VALSARTAN [Concomitant]
     Indication: HYPERTENSION

REACTIONS (5)
  - INJECTION SITE ERYTHEMA [None]
  - INJECTION SITE MASS [None]
  - INJECTION SITE PRURITUS [None]
  - INJECTION SITE REACTION [None]
  - RASH ERYTHEMATOUS [None]
